FAERS Safety Report 16326621 (Version 1)
Quarter: 2019Q2

REPORT INFORMATION
  Report Type: Spontaneous
  Country: CH (occurrence: CH)
  Receive Date: 20190517
  Receipt Date: 20190517
  Transmission Date: 20190711
  Serious: Yes (Other)
  Sender: FDA-Public Use
  Company Number: CH-ASTRAZENECA-2019SE73316

PATIENT
  Age: 21788 Day
  Sex: Male

DRUGS (21)
  1. ESCITALOPRAM [Interacting]
     Active Substance: ESCITALOPRAM OXALATE
     Route: 048
  2. WELLVONE [Concomitant]
     Active Substance: ATOVAQUONE
  3. ATACAND [Concomitant]
     Active Substance: CANDESARTAN CILEXETIL
  4. BELOC ZOK [Concomitant]
     Active Substance: METOPROLOL SUCCINATE
  5. DAFALGAN [Concomitant]
     Active Substance: ACETAMINOPHEN
     Dosage: AS NECESSARY
  6. TEMOZOLOMIDE. [Concomitant]
     Active Substance: TEMOZOLOMIDE
     Dates: start: 20190425, end: 20190429
  7. LAXOBERON [Concomitant]
     Active Substance: SODIUM PICOSULFATE
  8. ASPIRIN CARDIO [Concomitant]
     Active Substance: ASPIRIN
  9. RIOPAN [Concomitant]
     Dosage: AS NECESSARY
  10. DESCOVY [Concomitant]
     Active Substance: EMTRICITABINE\TENOFOVIR ALAFENAMIDE FUMARATE
  11. NEXIUM MUPS [Suspect]
     Active Substance: ESOMEPRAZOLE
     Route: 048
     Dates: start: 20190424
  12. PREGABALIN. [Concomitant]
     Active Substance: PREGABALIN
  13. COLECALCIFEROL [Concomitant]
     Active Substance: CHOLECALCIFEROL
  14. TEMGESIC [Concomitant]
     Active Substance: BUPRENORPHINE HYDROCHLORIDE
     Dosage: AS NECESSARY
  15. CAPECITABINE. [Concomitant]
     Active Substance: CAPECITABINE
     Dosage: CYCLICAL
  16. LANTUS [Concomitant]
     Active Substance: INSULIN GLARGINE
  17. TIVICAY [Concomitant]
     Active Substance: DOLUTEGRAVIR SODIUM
  18. TRANSTEC [Concomitant]
     Active Substance: BUPRENORPHINE
  19. BULBOID [Concomitant]
     Dosage: AS NECESSARY
  20. CAPECITABINE. [Concomitant]
     Active Substance: CAPECITABINE
     Dates: start: 20190416, end: 20190419
  21. NOVORAPID [Concomitant]
     Active Substance: INSULIN ASPART

REACTIONS (4)
  - Accidental overdose [Unknown]
  - Psychomotor skills impaired [Unknown]
  - Electrocardiogram QT prolonged [Not Recovered/Not Resolved]
  - Drug interaction [Not Recovered/Not Resolved]

NARRATIVE: CASE EVENT DATE: 20190424
